FAERS Safety Report 5121102-0 (Version None)
Quarter: 2006Q4

REPORT INFORMATION
  Report Type: 
  Country: None (occurrence: None)
  Receive Date: 20061005
  Receipt Date: 20060523
  Transmission Date: 20070319
  Serious: Yes (Other)
  Sender: FDA-Public Use
  Company Number: GB-PURDUE-GBR_2006_0002309

PATIENT
  Age: 74 Year
  Sex: Male

DRUGS (19)
  1. OXYCONTIN [Suspect]
     Indication: PAIN
     Dosage: 5 MG, BID
     Route: 048
     Dates: start: 20060101
  2. OXYCONTIN [Suspect]
     Dosage: 10 MG, BID
     Route: 048
     Dates: start: 20060406
  3. OXYNORM CAPSULES 5 MG [Suspect]
     Indication: PAIN
     Dosage: 5 MG, Q4H PRN
     Route: 048
     Dates: start: 20060223
  4. AMITRIPTYLINE HCL [Concomitant]
     Dosage: 25 MG, NOCTE
     Route: 065
  5. ACETAMINOPHEN [Concomitant]
     Dosage: 2 DF, QID
     Route: 065
  6. SIMVASTATIN [Concomitant]
     Dosage: 20 MG, NOCTE
     Route: 065
  7. PERINDOPRIL ERBUMINE [Concomitant]
     Dosage: 2 MG, NOCTE
     Route: 065
  8. PERINDOPRIL ERBUMINE [Concomitant]
     Dosage: 4 MG, DAILY
  9. DIPYRIDAMOLE [Concomitant]
     Dosage: 200 MG, TID
     Route: 048
  10. MONOMAX [Concomitant]
     Dosage: 60 MG, DAILY
     Route: 048
  11. ASPIRIN [Concomitant]
     Dosage: 300 MG, DAILY
     Route: 048
  12. COMBIVENT [Concomitant]
  13. ALBUTEROL SPIROS [Concomitant]
  14. ALLOPURINOL [Concomitant]
     Dosage: 300 MG, DAILY
     Route: 048
  15. CALCICHEW-D3 [Concomitant]
     Dosage: 1 TABLET, BID
     Route: 048
  16. LANSOPRAZOLE [Concomitant]
     Dosage: 30 MG, DAILY
     Route: 048
  17. NASONEX [Concomitant]
  18. FOLIC ACID [Concomitant]
     Dosage: 5 MG, DAILY
     Route: 065
  19. FERROUS SULFATE TAB [Concomitant]
     Dosage: 200 MG, BID
     Route: 065

REACTIONS (6)
  - CHILLS [None]
  - CYSTITIS [None]
  - DEPRESSION [None]
  - DRUG DEPENDENCE [None]
  - HYPERHIDROSIS [None]
  - STAPHYLOCOCCAL INFECTION [None]
